FAERS Safety Report 16578079 (Version 2)
Quarter: 2019Q3

REPORT INFORMATION
  Report Type: Spontaneous
  Country: US (occurrence: US)
  Receive Date: 20190716
  Receipt Date: 20190718
  Transmission Date: 20191004
  Serious: No
  Sender: FDA-Public Use
  Company Number: US-PFIZER INC-2019298681

PATIENT
  Age: 57 Year
  Sex: Female
  Weight: 131.54 kg

DRUGS (12)
  1. LYRICA [Suspect]
     Active Substance: PREGABALIN
     Indication: HEADACHE
  2. POTASSIUM [Concomitant]
     Active Substance: POTASSIUM
     Dosage: UNK, ALTERNATE DAY
  3. CHLORTHALIDONE. [Concomitant]
     Active Substance: CHLORTHALIDONE
     Indication: BLOOD PRESSURE ABNORMAL
     Dosage: 25 MG, 1X/DAY
     Route: 048
  4. BROMOCRIPTINE [Concomitant]
     Active Substance: BROMOCRIPTINE
     Indication: PITUITARY TUMOUR BENIGN
  5. CYMBALTA [Suspect]
     Active Substance: DULOXETINE HYDROCHLORIDE
     Indication: FIBROMYALGIA
     Dosage: 60 MG, 2X/DAY
     Route: 048
  6. NUCYNTA [Concomitant]
     Active Substance: TAPENTADOL HYDROCHLORIDE
     Dosage: 100 MG, 2X/DAY
  7. TOPAMAX [Concomitant]
     Active Substance: TOPIRAMATE
     Dosage: 75 MG, UNK (25MG TAKING 3 IN THE MORNING)
  8. LYRICA [Suspect]
     Active Substance: PREGABALIN
     Indication: FIBROMYALGIA
     Dosage: 75 MG, 3X/DAY (1 RED/WHITE CAPSULE BY MOUTH THREE TIMES DAILY)
     Route: 048
  9. BROMOCRIPTINE [Concomitant]
     Active Substance: BROMOCRIPTINE
     Indication: BRAIN NEOPLASM
     Dosage: 1 DF, 1X/DAY (AT NIGHT)
     Route: 048
  10. NABUMETONE. [Concomitant]
     Active Substance: NABUMETONE
     Indication: INFLAMMATION
     Dosage: 500 MG, 2X/DAY
     Route: 048
  11. TOPAMAX [Concomitant]
     Active Substance: TOPIRAMATE
     Indication: HEADACHE
     Dosage: 200 MG, 1X/DAY (1 TABLET BY MOUTH AT NIGHT) (3 IN THE MORNING, BUT WAS WEANED OFF.)
     Route: 048
  12. POTASSIUM [Concomitant]
     Active Substance: POTASSIUM
     Dosage: 20 MEQ, DAILY
     Route: 048

REACTIONS (2)
  - Fibromyalgia [Unknown]
  - Withdrawal syndrome [Unknown]
